FAERS Safety Report 4653336-3 (Version None)
Quarter: 2005Q2

REPORT INFORMATION
  Report Type: 
  Country: None (occurrence: None)
  Receive Date: 20050503
  Receipt Date: 20050421
  Transmission Date: 20051028
  Serious: Yes (Other)
  Sender: FDA-Public Use
  Company Number: 2005064672

PATIENT
  Age: 23 Year
  Sex: Female

DRUGS (2)
  1. DEPO-PROVERA [Suspect]
     Indication: ILL-DEFINED DISORDER
     Dosage: INTRAMUSCULAR
     Route: 030
  2. CITALOPRAM HYDROCHLORIDE (CITALOPRAM HYDROCHLORIDE) [Concomitant]

REACTIONS (4)
  - INCORRECT DOSE ADMINISTERED [None]
  - INCORRECT ROUTE OF DRUG ADMINISTRATION [None]
  - SHOCK [None]
  - SYNCOPE VASOVAGAL [None]
